FAERS Safety Report 9565607 (Version 1)
Quarter: 2013Q3

REPORT INFORMATION
  Report Type: Spontaneous
  Country: US (occurrence: US)
  Receive Date: 20130930
  Receipt Date: 20130930
  Transmission Date: 20140515
  Serious: Yes (Other)
  Sender: FDA-Public Use
  Company Number: US-009507513-1309USA012719

PATIENT
  Age: 58 Year
  Sex: Female

DRUGS (5)
  1. FOSAMAX [Suspect]
     Indication: OSTEOPENIA
     Dosage: 70 MG, QW FOR 8 YEARS
     Route: 048
  2. CALCIUM (UNSPECIFIED) [Concomitant]
     Indication: ROUTINE HEALTH MAINTENANCE
     Dosage: 1 DF, BID (600MG)
  3. VITAMIN D (UNSPECIFIED) [Concomitant]
     Indication: ROUTINE HEALTH MAINTENANCE
     Dosage: 1 DF, BID (400IU)
  4. GLUCOSAMINE [Concomitant]
     Dosage: 1 DF, BID (1500MG)
  5. CHONDROITIN SULFATE SODIUM [Concomitant]
     Dosage: 1 DF, BID (1200MG)

REACTIONS (1)
  - Osteonecrosis of jaw [Recovered/Resolved]
